FAERS Safety Report 12552205 (Version 1)
Quarter: 2016Q3

REPORT INFORMATION
  Report Type: Spontaneous
  Country: US (occurrence: None)
  Receive Date: 20160712
  Receipt Date: 20160712
  Transmission Date: 20161109
  Serious: No
  Sender: FDA-Public Use
  Company Number: None

PATIENT
  Age: 70 Year
  Sex: Female
  Weight: 68.04 kg

DRUGS (5)
  1. LORAZEPAM. [Concomitant]
     Active Substance: LORAZEPAM
  2. VITAMIN D [Concomitant]
     Active Substance: CHOLECALCIFEROL
  3. NEXIUM [Suspect]
     Active Substance: ESOMEPRAZOLE MAGNESIUM
     Indication: GASTROOESOPHAGEAL REFLUX DISEASE
     Dosage: 12 YEARS AGO
     Route: 048
  4. CALCIUM [Concomitant]
     Active Substance: CALCIUM
  5. ANTENOLOL [Concomitant]

REACTIONS (4)
  - Productive cough [None]
  - Vulvovaginal dryness [None]
  - Oropharyngeal pain [None]
  - Rash [None]

NARRATIVE: CASE EVENT DATE: 20160520
